FAERS Safety Report 21034451 (Version 1)
Quarter: 2022Q3

REPORT INFORMATION
  Report Type: Other
  Country: US (occurrence: None)
  Receive Date: 20220701
  Receipt Date: 20220701
  Transmission Date: 20221026
  Serious: Yes (Life-Threatening, Hospitalization)
  Sender: FDA-Public Use
  Company Number: US-ROCHE-3126394

PATIENT
  Sex: Male

DRUGS (2)
  1. XELODA [Suspect]
     Active Substance: CAPECITABINE
     Indication: Colorectal cancer metastatic
     Dosage: TAKE 1 TABLET BY MOUTH TWICE A DAY 2 WEEKS ON, 1 WEEK OFF
     Route: 048
  2. XELODA [Suspect]
     Active Substance: CAPECITABINE
     Dosage: TAKE 3 TABLETS BY MOUTH TWICE A DAY 2 WEEKS ON, 1 WEEK OFF
     Route: 048

REACTIONS (3)
  - Pain [Unknown]
  - Constipation [Unknown]
  - Gastrointestinal oedema [Unknown]
